FAERS Safety Report 7393731-5 (Version None)
Quarter: 2011Q1

REPORT INFORMATION
  Report Type: 
  Country: None (occurrence: None)
  Receive Date: 20110330
  Receipt Date: 20110330
  Transmission Date: 20110831
  Serious: Yes (Hospitalization)
  Sender: FDA-Public Use
  Company Number: None

PATIENT
  Age: 59 Year
  Sex: Male
  Weight: 121.564 kg

DRUGS (9)
  1. MULTIVITAMIN DAILY [Concomitant]
  2. OMEGA-3 FATTY ACIDS [Concomitant]
  3. ARSENIC TRIOXIDE [Suspect]
     Indication: GLIOBLASTOMA
     Dosage: 25.61 MG BI WEEKLY IV DRIP
     Route: 041
     Dates: start: 20110110, end: 20110228
  4. TEMOZOLOMIDE [Suspect]
     Indication: GLIOBLASTOMA
     Dosage: 200 MG/M2 OR 500 MG DAILY X 5 Q 28 DAY PO
     Route: 048
     Dates: start: 20110110, end: 20110326
  5. COMPAZINE [Concomitant]
  6. RADIATION THERAPY [Concomitant]
  7. DEXAMETHASONEL [Concomitant]
  8. K-DUR [Concomitant]
  9. MAGNESIUM OXIDE [Concomitant]

REACTIONS (4)
  - MENINGITIS [None]
  - POSTICTAL STATE [None]
  - UNRESPONSIVE TO STIMULI [None]
  - GRAND MAL CONVULSION [None]
